FAERS Safety Report 7458785-6 (Version None)
Quarter: 2011Q2

REPORT INFORMATION
  Report Type: 
  Country: None (occurrence: None)
  Receive Date: 20110504
  Receipt Date: 20110429
  Transmission Date: 20111010
  Serious: Yes (Death, Other)
  Sender: FDA-Public Use
  Company Number: GB-ROXANE LABORATORIES, INC.-2011-RO-00593RO

PATIENT
  Age: 35 Year
  Sex: Male
  Weight: 140 kg

DRUGS (7)
  1. PREDNISOLONE [Suspect]
     Indication: ASTHMA
     Route: 048
  2. SALMETEROL [Suspect]
     Indication: ASTHMA
     Route: 055
  3. THEOPHYLLINE [Suspect]
     Indication: ASTHMA
  4. OPIOID ANALGESICS [Concomitant]
     Indication: BACK PAIN
  5. ALBUTEROL SULFATE AUTOHALER [Suspect]
     Indication: ASTHMA
     Route: 055
  6. FLUTICASONE PROPIONATE [Suspect]
     Indication: ASTHMA
     Route: 055
  7. OMALIZUMAB [Suspect]
     Indication: ASTHMA
     Dates: start: 20080101

REACTIONS (7)
  - SPINAL CORD DISORDER [None]
  - WEIGHT INCREASED [None]
  - ASTHMA [None]
  - BACK PAIN [None]
  - ADRENOCORTICAL STEROID THERAPY [None]
  - EPIDURAL LIPOMATOSIS [None]
  - PNEUMONIA [None]
